FAERS Safety Report 6577045-9 (Version None)
Quarter: 2010Q1

REPORT INFORMATION
  Report Type: 
  Country: None (occurrence: None)
  Receive Date: 20100210
  Receipt Date: 20100129
  Transmission Date: 20100710
  Serious: Yes (Life-Threatening, Hospitalization)
  Sender: FDA-Public Use
  Company Number: DE-BRISTOL-MYERS SQUIBB COMPANY-14963813

PATIENT
  Age: 50 Year
  Sex: Female
  Weight: 65 kg

DRUGS (3)
  1. METFORMIN HCL [Suspect]
     Dosage: 1 DF = 40 X 850MG TABS
  2. CARBIMAZOLE [Concomitant]
  3. OLANZAPINE [Concomitant]

REACTIONS (8)
  - CAPILLARY LEAK SYNDROME [None]
  - INTENTIONAL OVERDOSE [None]
  - LACTIC ACIDOSIS [None]
  - PULMONARY OEDEMA [None]
  - RENAL DISORDER [None]
  - RHABDOMYOLYSIS [None]
  - SUICIDE ATTEMPT [None]
  - SYSTEMIC INFLAMMATORY RESPONSE SYNDROME [None]
